FAERS Safety Report 20572060 (Version 1)
Quarter: 2022Q1

REPORT INFORMATION
  Report Type: Spontaneous
  Country: US (occurrence: None)
  Receive Date: 20220308
  Receipt Date: 20220308
  Transmission Date: 20220423
  Serious: Yes (Life-Threatening, Other)
  Sender: FDA-Public Use
  Company Number: None

PATIENT
  Age: 8 Month
  Sex: Female
  Weight: 8.1 kg

DRUGS (1)
  1. BABY TEETHING (HYLAND HOMEOPATHIC) [Suspect]
     Active Substance: HOMEOPATHICS
     Indication: Teething
     Dosage: FREQUENCY : AS NEEDED;?
     Route: 048
     Dates: start: 20220120, end: 20220216

REACTIONS (4)
  - Seizure [None]
  - Dystonia [None]
  - Recalled product [None]
  - Product quality issue [None]

NARRATIVE: CASE EVENT DATE: 20220120
